FAERS Safety Report 9985460 (Version 3)
Quarter: 2014Q2

REPORT INFORMATION
  Report Type: Spontaneous
  Country: JP (occurrence: JP)
  Receive Date: 20140307
  Receipt Date: 20140415
  Transmission Date: 20141212
  Serious: Yes (Hospitalization)
  Sender: FDA-Public Use
  Company Number: JP-WATSON-2014-04387

PATIENT
  Age: 71 Year
  Sex: Male

DRUGS (10)
  1. RAPAFLO (WATSON LABORATORIES) [Suspect]
     Indication: DYSURIA
     Dosage: 4 MG, BID
     Route: 048
     Dates: end: 201306
  2. RAPAFLO (WATSON LABORATORIES) [Suspect]
     Indication: BLADDER OUTLET OBSTRUCTION
     Dosage: 4 MG, BID
     Route: 048
     Dates: end: 20140219
  3. LATANOPROST [Suspect]
     Indication: PRODUCT USED FOR UNKNOWN INDICATION
     Dosage: UNK, UNKNOWN
     Route: 065
  4. TARIVID                            /00731801/ [Suspect]
     Indication: PRODUCT USED FOR UNKNOWN INDICATION
     Route: 001
  5. ALLERMIST [Suspect]
     Indication: PRODUCT USED FOR UNKNOWN INDICATION
     Route: 045
  6. ELASZYM [Suspect]
     Indication: PRODUCT USED FOR UNKNOWN INDICATION
     Dosage: UNK
     Route: 048
  7. EPADEL                             /01682401/ [Suspect]
     Indication: PRODUCT USED FOR UNKNOWN INDICATION
     Dosage: 1200 MG, UNK
     Route: 048
  8. MIKELAN LA [Suspect]
     Indication: PRODUCT USED FOR UNKNOWN INDICATION
     Route: 031
  9. URITOS [Concomitant]
     Indication: PRODUCT USED FOR UNKNOWN INDICATION
     Dosage: 0.2 MG, UNK
     Route: 048
     Dates: end: 201306
  10. ONON [Concomitant]
     Indication: PRODUCT USED FOR UNKNOWN INDICATION
     Dosage: 450 MG, UNK
     Route: 048
     Dates: end: 201306

REACTIONS (3)
  - Altered state of consciousness [Recovered/Resolved]
  - Nausea [Recovered/Resolved]
  - Vomiting [Recovered/Resolved]
